FAERS Safety Report 8514084-2 (Version None)
Quarter: 2012Q2

REPORT INFORMATION
  Report Type: 
  Country: None (occurrence: None)
  Receive Date: 20120406
  Receipt Date: 20090602
  Transmission Date: 20120825
  Serious: Yes (Other)
  Sender: FDA-Public Use
  Company Number: PHEH2009US04004

PATIENT
  Sex: Male

DRUGS (17)
  1. GLYSET (MIGLITOL) [Concomitant]
  2. INSULIN (INSULIN) [Concomitant]
  3. TOPROL-XL [Concomitant]
  4. LANOXIN [Concomitant]
  5. COUMADIN [Concomitant]
  6. DIOVAN [Concomitant]
  7. LEXAPRO [Concomitant]
  8. LASIX [Concomitant]
  9. GLUCOTROL XL [Concomitant]
  10. ZETIA [Concomitant]
  11. AMBIEN [Concomitant]
  12. LEVAQUIN [Concomitant]
  13. FLOMAX [Concomitant]
  14. TASIGNA [Suspect]
     Indication: CHRONIC MYELOID LEUKAEMIA
     Dosage: 400 MG, QD, ORAL
     Route: 048
     Dates: start: 20090318, end: 20090326
  15. NEURONTIN [Concomitant]
  16. AMBOEN (ZOLPIDEM TARTRATE) [Concomitant]
  17. HUMULIN (INSULIN HUMAN, INSULIN ISOPHANE, HUMAN BIOSYNTHETIC) [Concomitant]

REACTIONS (1)
  - ELECTROCARDIOGRAM QT PROLONGED [None]
